FAERS Safety Report 11358778 (Version 1)
Quarter: 2015Q3

REPORT INFORMATION
  Report Type: Spontaneous
  Country: US (occurrence: None)
  Receive Date: 20150806
  Receipt Date: 20150806
  Transmission Date: 20151125
  Serious: Yes (Life-Threatening, Other)
  Sender: FDA-Public Use
  Company Number: 001955627A

PATIENT
  Sex: Female

DRUGS (4)
  1. WITCH HAZEL. [Concomitant]
     Active Substance: WITCH HAZEL
  2. EUCALYPTUS OIL [Concomitant]
     Active Substance: EUCALYPTUS OIL
  3. PROACTIVPLUS SKIN SMOOTHING EXFOLIATOR [Suspect]
     Active Substance: BENZOYL PEROXIDE
     Indication: ACNE
     Dosage: DERMAL
     Dates: start: 20150701
  4. PROACTIV PLUS COMPLEXION PERFECTING HYDRATOR [Suspect]
     Active Substance: SALICYLIC ACID
     Indication: ACNE
     Dosage: DERMAL
     Dates: start: 20150701

REACTIONS (6)
  - Blister [None]
  - Pruritus [None]
  - Mouth swelling [None]
  - Swelling face [None]
  - Lip swelling [None]
  - Peripheral swelling [None]

NARRATIVE: CASE EVENT DATE: 20150701
